FAERS Safety Report 10103793 (Version 1)
Quarter: 2014Q2

REPORT INFORMATION
  Report Type: Spontaneous
  Country: US (occurrence: US)
  Receive Date: 20140424
  Receipt Date: 20140424
  Transmission Date: 20141212
  Serious: No
  Sender: FDA-Public Use
  Company Number: US-TEVA-477645USA

PATIENT
  Age: 34 Year
  Sex: Female
  Weight: 46.76 kg

DRUGS (1)
  1. PARAGARD 380A [Suspect]
     Indication: CONTRACEPTION
     Route: 015
     Dates: start: 20140408, end: 20140408

REACTIONS (2)
  - Discomfort [Unknown]
  - Uterine spasm [Unknown]
